FAERS Safety Report 12470846 (Version 1)
Quarter: 2016Q2

REPORT INFORMATION
  Report Type: Spontaneous
  Country: US (occurrence: US)
  Receive Date: 20160616
  Receipt Date: 20160616
  Transmission Date: 20160815
  Serious: No
  Sender: FDA-Public Use
  Company Number: US-TEVA-666690USA

PATIENT
  Sex: Female

DRUGS (1)
  1. QUARTETTE [Suspect]
     Active Substance: ETHINYL ESTRADIOL\LEVONORGESTREL
     Route: 065

REACTIONS (1)
  - Headache [Unknown]
